FAERS Safety Report 5350084-1 (Version None)
Quarter: 2007Q2

REPORT INFORMATION
  Report Type: 
  Country: None (occurrence: None)
  Receive Date: 20070521
  Receipt Date: 20070312
  Transmission Date: 20071010
  Serious: No
  Sender: FDA-Public Use
  Company Number: WAES 0703USA02237

PATIENT
  Age: 47 Year
  Sex: Male

DRUGS (4)
  1. JANUVIA [Suspect]
     Dosage: 100 MG/DAILY/PO
     Route: 048
     Dates: start: 20070223, end: 20070226
  2. CELEBREX [Concomitant]
  3. LORTAB [Concomitant]
  4. ZANTAC [Concomitant]

REACTIONS (2)
  - ASTHENIA [None]
  - FATIGUE [None]
